FAERS Safety Report 12776778 (Version 1)
Quarter: 2016Q3

REPORT INFORMATION
  Report Type: Report from Study
  Country: US (occurrence: US)
  Receive Date: 20160923
  Receipt Date: 20160923
  Transmission Date: 20161109
  Serious: Yes (Other)
  Sender: FDA-Public Use
  Company Number: US-ABBVIE-16P-163-1735381-00

PATIENT
  Age: 28 Year
  Sex: Female

DRUGS (1)
  1. LUPRON DEPOT [Suspect]
     Active Substance: LEUPROLIDE ACETATE
     Indication: ENDOMETRIOSIS
     Route: 050
     Dates: start: 2009, end: 2009

REACTIONS (6)
  - Cholecystectomy [Recovered/Resolved]
  - Uterine leiomyoma [Unknown]
  - Endometriosis [Recovered/Resolved]
  - Migraine [Not Recovered/Not Resolved]
  - Abdominal pain [Unknown]
  - Uterine enlargement [Unknown]

NARRATIVE: CASE EVENT DATE: 2013
